FAERS Safety Report 10314690 (Version 5)
Quarter: 2014Q4

REPORT INFORMATION
  Report Type: Spontaneous
  Country: IT (occurrence: IT)
  Receive Date: 20140718
  Receipt Date: 20141118
  Transmission Date: 20150528
  Serious: Yes (Other)
  Sender: FDA-Public Use
  Company Number: IT-GE HEALTHCARE MEDICAL DIAGNOSTICS-VISP-PR-1407S-0336

PATIENT
  Age: 58 Year
  Sex: Male
  Weight: 83 kg

DRUGS (2)
  1. VISIPAQUE [Suspect]
     Active Substance: IODIXANOL
     Indication: DIAGNOSTIC PROCEDURE
  2. VISIPAQUE [Suspect]
     Active Substance: IODIXANOL
     Indication: INVESTIGATION
     Route: 065
     Dates: start: 20140709, end: 20140709

REACTIONS (2)
  - Swelling face [Recovered/Resolved]
  - Flushing [Recovered/Resolved]

NARRATIVE: CASE EVENT DATE: 20140709
